FAERS Safety Report 9843419 (Version 1)
Quarter: 2013Q4

REPORT INFORMATION
  Report Type: Spontaneous
  Country: US (occurrence: None)
  Receive Date: 20131219
  Receipt Date: 20131219
  Transmission Date: 20140711
  Serious: Yes (Other)
  Sender: FDA-Public Use
  Company Number: 163-20785-13074614

PATIENT
  Age: 66 Year
  Sex: Male

DRUGS (10)
  1. THALOMID (THALIDOMIDE) (50 MILLIGRAM, CAPSULES) [Suspect]
     Indication: PLASMA CELL MYELOMA
     Dosage: 1 IN 1 D
     Route: 048
     Dates: start: 200811
  2. VITAMIN B-6 [Concomitant]
  3. CENTRUM [Concomitant]
  4. AMLODIPINE BESYLATE [Concomitant]
  5. DEXAMETHASONE [Concomitant]
  6. HYDRALAZINE [Concomitant]
  7. BYSTOLIC [Concomitant]
  8. ASPIRIN [Concomitant]
  9. FOLIC ACID [Concomitant]
  10. VITAMIN B-12 [Concomitant]

REACTIONS (3)
  - Deep vein thrombosis [None]
  - Pulmonary embolism [None]
  - Neuropathy peripheral [None]
